FAERS Safety Report 19520533 (Version 1)
Quarter: 2021Q3

REPORT INFORMATION
  Report Type: Spontaneous
  Country: US (occurrence: US)
  Receive Date: 20210712
  Receipt Date: 20210712
  Transmission Date: 20211014
  Serious: No
  Sender: FDA-Public Use
  Company Number: US-FOUNDATIONCONSUMERHC-2021-US-012588

PATIENT
  Age: 27 Year
  Sex: Female
  Weight: 68.95 kg

DRUGS (4)
  1. EMGALITY [Concomitant]
     Active Substance: GALCANEZUMAB-GNLM
  2. PLAN B ONE?STEP [Suspect]
     Active Substance: LEVONORGESTREL
     Indication: POST COITAL CONTRACEPTION
     Dosage: 1.5 MG
     Route: 048
     Dates: start: 20210608, end: 20210608
  3. MAGNESIUM [Concomitant]
     Active Substance: MAGNESIUM
  4. IMITREX [Concomitant]
     Active Substance: SUMATRIPTAN SUCCINATE

REACTIONS (1)
  - Diarrhoea [Recovered/Resolved]

NARRATIVE: CASE EVENT DATE: 20210608
